FAERS Safety Report 8313722-7 (Version None)
Quarter: 2012Q2

REPORT INFORMATION
  Report Type: 
  Country: None (occurrence: None)
  Receive Date: 20120426
  Receipt Date: 20120419
  Transmission Date: 20120825
  Serious: Yes (Disabling)
  Sender: FDA-Public Use
  Company Number: IT-ASTRAZENECA-2012SE20073

PATIENT
  Age: 612 Month
  Sex: Female

DRUGS (1)
  1. OMEPRAZOLE [Suspect]
     Indication: GASTROOESOPHAGEAL REFLUX DISEASE
     Route: 048
     Dates: start: 20040101, end: 20120301

REACTIONS (3)
  - BASEDOW'S DISEASE [None]
  - HEADACHE [None]
  - OSTEOPOROSIS [None]
